FAERS Safety Report 4894846-3 (Version None)
Quarter: 2006Q1

REPORT INFORMATION
  Report Type: 
  Country: None (occurrence: None)
  Receive Date: 20060126
  Receipt Date: 20060126
  Transmission Date: 20060701
  Serious: No
  Sender: FDA-Public Use
  Company Number: None

PATIENT
  Age: 30 Year
  Sex: Male

DRUGS (2)
  1. PROMETHAZINE [Suspect]
     Indication: NAUSEA
     Dosage: 25 MG ORAL
     Route: 048
     Dates: start: 20051130
  2. PROMETHAZINE [Suspect]
     Indication: VOMITING
     Dosage: 25 MG ORAL
     Route: 048
     Dates: start: 20051130

REACTIONS (2)
  - PRURITUS [None]
  - VOMITING [None]
